FAERS Safety Report 9265485 (Version 1)
Quarter: 2013Q2

REPORT INFORMATION
  Report Type: Spontaneous
  Country: NL (occurrence: NL)
  Receive Date: 20130501
  Receipt Date: 20130501
  Transmission Date: 20140414
  Serious: Yes (Hospitalization)
  Sender: FDA-Public Use
  Company Number: NL-ASTRAZENECA-2013SE27908

PATIENT
  Age: 59 Year
  Sex: Male
  Weight: 70 kg

DRUGS (14)
  1. SELOKEEN ZOC [Suspect]
     Indication: HYPERTENSION
     Dosage: 100 TABLET MGA 95 MG
     Route: 048
  2. SELOKEEN ZOC [Suspect]
     Indication: HYPERTENSION
     Dosage: GENERIC
     Route: 048
     Dates: start: 20130404, end: 20130408
  3. SELOKEEN ZOC [Suspect]
     Indication: HYPERTENSION
     Route: 048
  4. NOVORAPID PENFILL [Concomitant]
     Dosage: 100 E/ML
     Route: 058
  5. INSULATARD PENFILL [Concomitant]
     Dosage: 100 IE/ML
     Route: 058
  6. FENPROCOUMON [Concomitant]
     Route: 048
  7. ACETYLSALICYLZUUR [Concomitant]
     Route: 048
  8. NIFEDIPINE [Concomitant]
     Route: 048
  9. LOSARTAN [Concomitant]
     Route: 048
  10. LOSARTAN/HYDROCHLOORTHIAZIDE [Concomitant]
     Dosage: 50/12.5 MG, ONE TABLET TWO TIMES A DAY
     Route: 048
  11. ATORVASTATINE (ALS CA-ZOUT) [Concomitant]
     Route: 048
  12. PREDNISOLON [Concomitant]
     Route: 048
  13. CELLCEPT [Concomitant]
     Route: 048
  14. NEORAL [Concomitant]
     Route: 048

REACTIONS (2)
  - Anuria [Recovered/Resolved]
  - Therapeutic response unexpected with drug substitution [Recovered/Resolved]
